FAERS Safety Report 4291555-9 (Version None)
Quarter: 2004Q1

REPORT INFORMATION
  Report Type: 
  Country: None (occurrence: None)
  Receive Date: 20040126
  Receipt Date: 20031117
  Transmission Date: 20041129
  Serious: Yes (Other)
  Sender: FDA-Public Use
  Company Number: USA030947638

PATIENT
  Age: 75 Year
  Sex: Female
  Weight: 54 kg

DRUGS (8)
  1. FORTEO [Suspect]
     Indication: OSTEOPOROSIS
     Dosage: 20 UG/DAY
     Dates: start: 20030701
  2. SYNTHROID [Concomitant]
  3. ALTACE [Concomitant]
  4. ZOCOR [Concomitant]
  5. CHOLESTYRAMINE [Concomitant]
  6. LANTUS [Concomitant]
  7. HYDROCHLOROTHIAZIDE [Concomitant]
  8. NOVOLOG [Concomitant]

REACTIONS (5)
  - BLOOD ALDOSTERONE DECREASED [None]
  - BLOOD SODIUM DECREASED [None]
  - HYPERKALAEMIA [None]
  - RENAL TUBULAR ACIDOSIS [None]
  - RENIN INCREASED [None]
